FAERS Safety Report 7149813-6 (Version None)
Quarter: 2010Q4

REPORT INFORMATION
  Report Type: 
  Country: None (occurrence: None)
  Receive Date: 20101210
  Receipt Date: 20101201
  Transmission Date: 20110411
  Serious: No
  Sender: FDA-Public Use
  Company Number: US-BIOGENIDEC-2010BI042286

PATIENT
  Age: 23 Year
  Sex: Female

DRUGS (2)
  1. TYSABRI [Suspect]
     Indication: MULTIPLE SCLEROSIS
     Route: 042
     Dates: start: 20070830, end: 20090108
  2. TYSABRI [Suspect]
     Route: 042
     Dates: start: 20100319

REACTIONS (3)
  - MALAISE [None]
  - MIGRAINE [None]
  - OROPHARYNGEAL PAIN [None]
